FAERS Safety Report 5425391-4 (Version None)
Quarter: 2007Q3

REPORT INFORMATION
  Report Type: 
  Country: None (occurrence: None)
  Receive Date: 20070824
  Receipt Date: 20070824
  Transmission Date: 20080115
  Serious: Yes (Hospitalization)
  Sender: FDA-Public Use
  Company Number: DE-ROXANE LABORATORIES, INC-2007-DE-04917GD

PATIENT
  Age: 55 Year
  Sex: Male

DRUGS (10)
  1. OXAZEPAM [Suspect]
  2. SERTRALINE [Suspect]
  3. MIRTAZAPINE [Suspect]
  4. DIAZEPAM [Suspect]
  5. FUROSEMIDE [Suspect]
  6. THEOPHYLLINE [Suspect]
  7. ENALAPRIL [Suspect]
  8. LISINOPRIL [Suspect]
  9. RAMIPRIL [Suspect]
  10. REBOXETINE [Suspect]

REACTIONS (4)
  - COLONIC ATONY [None]
  - DEPRESSION [None]
  - DRUG TOXICITY [None]
  - PSYCHOTIC DISORDER [None]
